FAERS Safety Report 10642865 (Version 1)
Quarter: 2014Q4

REPORT INFORMATION
  Report Type: Spontaneous
  Country: US (occurrence: None)
  Receive Date: 20141209
  Receipt Date: 20141209
  Transmission Date: 20150529
  Serious: No
  Sender: FDA-Public Use
  Company Number: None

PATIENT
  Age: 55 Year
  Sex: Female

DRUGS (1)
  1. DILTIAZEM [Suspect]
     Active Substance: DILTIAZEM
     Indication: DYSPHAGIA
     Dosage: ONE TABLET FOUR TIMES DAILY
     Route: 048
     Dates: start: 20141103, end: 20141129

REACTIONS (2)
  - Depression [None]
  - Rash generalised [None]

NARRATIVE: CASE EVENT DATE: 20141119
